FAERS Safety Report 7990826-X (Version None)
Quarter: 2011Q4

REPORT INFORMATION
  Report Type: 
  Country: None (occurrence: None)
  Receive Date: 20111219
  Receipt Date: 20111208
  Transmission Date: 20120403
  Serious: Yes (Death, Hospitalization)
  Sender: FDA-Public Use
  Company Number: US-ACTELION-A-US2010-37941

PATIENT

DRUGS (4)
  1. TRACLEER [Suspect]
     Indication: PULMONARY ARTERIAL HYPERTENSION
     Dosage: UNK
     Route: 048
     Dates: start: 20100419, end: 20111205
  2. COUMADIN [Concomitant]
  3. REVATIO [Concomitant]
  4. OXYGEN [Concomitant]

REACTIONS (14)
  - CHRONIC OBSTRUCTIVE PULMONARY DISEASE [None]
  - PULMONARY HYPERTENSION [None]
  - CARDIAC VALVE DISEASE [None]
  - COR PULMONALE [None]
  - ATRIAL FIBRILLATION [None]
  - PNEUMONIA [None]
  - DEATH [None]
  - ATRIAL FLUTTER [None]
  - LUNG DISORDER [None]
  - OEDEMA [None]
  - ASTHMA [None]
  - ACUTE RESPIRATORY FAILURE [None]
  - CARDIAC FAILURE CONGESTIVE [None]
  - DYSPNOEA [None]
